FAERS Safety Report 14425316 (Version 1)
Quarter: 2018Q1

REPORT INFORMATION
  Report Type: Spontaneous
  Country: AR (occurrence: AR)
  Receive Date: 20180123
  Receipt Date: 20180123
  Transmission Date: 20180509
  Serious: Yes (Other)
  Sender: FDA-Public Use
  Company Number: AR-PFIZER INC-2018029885

PATIENT
  Age: 57 Year
  Sex: Male

DRUGS (2)
  1. SUTENT [Suspect]
     Active Substance: SUNITINIB MALATE
     Indication: METASTATIC RENAL CELL CARCINOMA
     Dosage: UNK
     Dates: start: 20160415
  2. SUTENT [Suspect]
     Active Substance: SUNITINIB MALATE
     Dosage: UNK, DAILY

REACTIONS (2)
  - Azotaemia [Unknown]
  - Fatigue [Unknown]

NARRATIVE: CASE EVENT DATE: 20180108
